FAERS Safety Report 18583403 (Version 2)
Quarter: 2021Q3

REPORT INFORMATION
  Report Type: Spontaneous
  Country: US (occurrence: US)
  Receive Date: 20201206
  Receipt Date: 20210727
  Transmission Date: 20211014
  Serious: Yes (Death, Hospitalization, Other)
  Sender: FDA-Public Use
  Company Number: US-ASTRAZENECA-2020SF60589

PATIENT
  Age: 19832 Day
  Sex: Male

DRUGS (43)
  1. NEXIUM [Suspect]
     Active Substance: ESOMEPRAZOLE MAGNESIUM
     Indication: ABDOMINAL DISCOMFORT
     Route: 048
     Dates: start: 2011, end: 2015
  2. HYDRALAZINE [Concomitant]
     Active Substance: HYDRALAZINE HYDROCHLORIDE
     Indication: HYPERTENSION
     Dates: start: 2011, end: 2012
  3. FUROSEMIDE. [Concomitant]
     Active Substance: FUROSEMIDE
     Indication: HYPERTENSION
     Dates: start: 2011, end: 2013
  4. MIRTAZAPINE. [Concomitant]
     Active Substance: MIRTAZAPINE
     Dates: start: 20100324
  5. OMEPRAZOLE. [Suspect]
     Active Substance: OMEPRAZOLE
     Indication: FLATULENCE
     Route: 065
     Dates: start: 20120229
  6. CELEBREX [Concomitant]
     Active Substance: CELECOXIB
     Indication: INFLAMMATION
     Dates: start: 2013, end: 2014
  7. SIMVASTATIN. [Concomitant]
     Active Substance: SIMVASTATIN
     Indication: BLOOD CHOLESTEROL ABNORMAL
     Dates: start: 2011, end: 2012
  8. CALCITRIOL. [Concomitant]
     Active Substance: CALCITRIOL
  9. NEXIUM [Suspect]
     Active Substance: ESOMEPRAZOLE MAGNESIUM
     Indication: ABDOMINAL DISCOMFORT
     Route: 048
     Dates: start: 201105, end: 201512
  10. NEXIUM [Suspect]
     Active Substance: ESOMEPRAZOLE MAGNESIUM
     Indication: FLATULENCE
     Route: 048
     Dates: start: 2011, end: 2015
  11. PANTOPRAZOLE [Suspect]
     Active Substance: PANTOPRAZOLE
     Indication: FLATULENCE
     Route: 065
     Dates: end: 2014
  12. LOSARTAN. [Concomitant]
     Active Substance: LOSARTAN
     Indication: RENAL DISORDER
     Dates: start: 2010, end: 2017
  13. BENICAR [Concomitant]
     Active Substance: OLMESARTAN MEDOXOMIL
     Indication: HYPERTENSION
     Dates: start: 2014
  14. CELEBREX [Concomitant]
     Active Substance: CELECOXIB
     Indication: PAIN
     Dates: start: 2013, end: 2014
  15. RANITIDINE. [Concomitant]
     Active Substance: RANITIDINE
     Dates: start: 2010
  16. HUMULIN R [Concomitant]
     Active Substance: INSULIN HUMAN
     Dates: start: 20100526
  17. METOPROLOL. [Concomitant]
     Active Substance: METOPROLOL
  18. ZOLPIDEM [Concomitant]
     Active Substance: ZOLPIDEM TARTRATE
  19. NEXIUM [Suspect]
     Active Substance: ESOMEPRAZOLE MAGNESIUM
     Indication: FLATULENCE
     Route: 048
     Dates: start: 2011, end: 2015
  20. OMEPRAZOLE. [Suspect]
     Active Substance: OMEPRAZOLE
     Indication: ABDOMINAL DISCOMFORT
     Route: 065
     Dates: end: 2013
  21. PANTOPRAZOLE [Suspect]
     Active Substance: PANTOPRAZOLE
     Indication: ABDOMINAL DISCOMFORT
     Route: 065
     Dates: start: 20120802
  22. HYDROCHLOROTHIAZIDE. [Concomitant]
     Active Substance: HYDROCHLOROTHIAZIDE
     Indication: OEDEMA
     Dates: start: 2011, end: 2012
  23. RENVELA [Concomitant]
     Active Substance: SEVELAMER CARBONATE
     Dates: start: 20100526
  24. LEVETIRACETAM. [Concomitant]
     Active Substance: LEVETIRACETAM
  25. NEXIUM [Suspect]
     Active Substance: ESOMEPRAZOLE MAGNESIUM
     Indication: ABDOMINAL DISCOMFORT
     Route: 048
     Dates: start: 2011, end: 2015
  26. NEXIUM [Suspect]
     Active Substance: ESOMEPRAZOLE MAGNESIUM
     Indication: ABDOMINAL DISCOMFORT
     Route: 048
     Dates: start: 20121116
  27. OMEPRAZOLE. [Suspect]
     Active Substance: OMEPRAZOLE
     Indication: ABDOMINAL DISCOMFORT
     Route: 065
     Dates: start: 20120229
  28. TRAMADOL. [Concomitant]
     Active Substance: TRAMADOL
     Indication: PAIN
     Dates: start: 2010, end: 2013
  29. ISOSORBIDE MONONITRATE. [Concomitant]
     Active Substance: ISOSORBIDE MONONITRATE
  30. PROTONIX [Suspect]
     Active Substance: PANTOPRAZOLE SODIUM
     Indication: ABDOMINAL DISCOMFORT
     Route: 065
     Dates: start: 2014
  31. HYDROCODONE/ACETAMINOPHEN [Concomitant]
     Active Substance: ACETAMINOPHEN\HYDROCODONE
     Dates: start: 20111112
  32. ESCITALOPRAM [Concomitant]
     Active Substance: ESCITALOPRAM OXALATE
     Dates: start: 20100526
  33. NEXIUM [Suspect]
     Active Substance: ESOMEPRAZOLE MAGNESIUM
     Indication: FLATULENCE
     Route: 048
     Dates: start: 201105, end: 201512
  34. NEXIUM [Suspect]
     Active Substance: ESOMEPRAZOLE MAGNESIUM
     Indication: FLATULENCE
     Route: 048
     Dates: start: 20121116
  35. LOSARTAN. [Concomitant]
     Active Substance: LOSARTAN
     Indication: HYPERTENSION
     Dates: start: 2010, end: 2017
  36. PRAVASTATIN. [Concomitant]
     Active Substance: PRAVASTATIN
     Indication: BLOOD CHOLESTEROL ABNORMAL
     Dates: start: 2014
  37. CARVEDILOL. [Concomitant]
     Active Substance: CARVEDILOL
     Dates: start: 20111112
  38. OMEPRAZOLE. [Suspect]
     Active Substance: OMEPRAZOLE
     Indication: FLATULENCE
     Route: 065
     Dates: end: 2013
  39. PANTOPRAZOLE [Suspect]
     Active Substance: PANTOPRAZOLE
     Indication: ABDOMINAL DISCOMFORT
     Route: 065
     Dates: end: 2014
  40. PANTOPRAZOLE [Suspect]
     Active Substance: PANTOPRAZOLE
     Indication: FLATULENCE
     Route: 065
     Dates: start: 20120802
  41. GLIPIZIDE. [Concomitant]
     Active Substance: GLIPIZIDE
     Dates: start: 20110727
  42. ASPIRIN. [Concomitant]
     Active Substance: ASPIRIN
     Dates: start: 20111112
  43. ZONISAMIDE. [Concomitant]
     Active Substance: ZONISAMIDE

REACTIONS (9)
  - Chronic kidney disease-mineral and bone disorder [Unknown]
  - End stage renal disease [Unknown]
  - Metabolic acidosis [Unknown]
  - Chronic kidney disease [Unknown]
  - Acute kidney injury [Unknown]
  - Hyperkalaemia [Unknown]
  - Renal failure [Unknown]
  - Arteriosclerosis [Fatal]
  - Nephrogenic anaemia [Unknown]

NARRATIVE: CASE EVENT DATE: 20140718
